FAERS Safety Report 17288425 (Version 1)
Quarter: 2020Q1

REPORT INFORMATION
  Report Type: Spontaneous
  Country: US (occurrence: US)
  Receive Date: 20200120
  Receipt Date: 20200120
  Transmission Date: 20200409
  Serious: Yes (Life-Threatening, Hospitalization, Disabling, Other)
  Sender: FDA-Public Use
  Company Number: US-ASTRAZENECA-2020SE07946

PATIENT
  Age: 19 Year
  Sex: Female
  Weight: 81.8 kg

DRUGS (1)
  1. SEROQUEL XR [Suspect]
     Active Substance: QUETIAPINE FUMARATE
     Dosage: DOSE UNKNOWN
     Route: 048
     Dates: start: 2014

REACTIONS (18)
  - Hypersomnia [Recovered/Resolved]
  - Mental disorder [Unknown]
  - Yawning [Unknown]
  - Post-traumatic stress disorder [Unknown]
  - Respiration abnormal [Unknown]
  - Choking [Unknown]
  - Overdose [Recovered/Resolved with Sequelae]
  - Heart rate increased [Recovered/Resolved]
  - Dissociative disorder [Unknown]
  - Confusional state [Unknown]
  - Suicide attempt [Recovered/Resolved with Sequelae]
  - Autism spectrum disorder [Unknown]
  - Blood glucose abnormal [Recovered/Resolved]
  - Somatic symptom disorder [Unknown]
  - Cardiac disorder [Unknown]
  - Memory impairment [Unknown]
  - Infectious mononucleosis [Not Recovered/Not Resolved]
  - Intentional product misuse [Unknown]

NARRATIVE: CASE EVENT DATE: 2014
